FAERS Safety Report 6644669-X (Version None)
Quarter: 2010Q1

REPORT INFORMATION
  Report Type: 
  Country: None (occurrence: None)
  Receive Date: 20100322
  Receipt Date: 20100315
  Transmission Date: 20100710
  Serious: Yes (Hospitalization)
  Sender: FDA-Public Use
  Company Number: FR-PFIZER INC-2010033395

PATIENT
  Age: 67 Year
  Sex: Female

DRUGS (3)
  1. MEDROL [Suspect]
     Dosage: 100 MG, UNK
     Route: 048
     Dates: start: 20091119, end: 20091126
  2. CORTANCYL [Suspect]
     Dosage: 5 MG, 1X/DAY
     Route: 048
     Dates: start: 20091127
  3. CORTANCYL [Suspect]
     Dosage: 2.5 MG, 1X/DAY
     Route: 048
     Dates: start: 20091216

REACTIONS (1)
  - DIABETES MELLITUS [None]
